FAERS Safety Report 6792946-4 (Version None)
Quarter: 2010Q2

REPORT INFORMATION
  Report Type: 
  Country: None (occurrence: None)
  Receive Date: 20100624
  Receipt Date: 20081110
  Transmission Date: 20101027
  Serious: No
  Sender: FDA-Public Use
  Company Number: US-PFIZER INC-2008079476

PATIENT
  Sex: Female
  Weight: 96.62 kg

DRUGS (3)
  1. DEPO-PROVERA SUSPENSION/INJ [Suspect]
     Indication: CONTRACEPTION
     Route: 030
     Dates: start: 20080510, end: 20080918
  2. ANTIHYPERTENSIVES [Concomitant]
     Indication: HYPERTENSION
  3. INDERAL [Concomitant]

REACTIONS (7)
  - BETA HAEMOLYTIC STREPTOCOCCAL INFECTION [None]
  - DERMATITIS [None]
  - ECZEMA [None]
  - INAPPROPRIATE SCHEDULE OF DRUG ADMINISTRATION [None]
  - RASH [None]
  - RASH VESICULAR [None]
  - SKIN INFECTION [None]
